FAERS Safety Report 7590527-6 (Version None)
Quarter: 2011Q3

REPORT INFORMATION
  Report Type: 
  Country: None (occurrence: None)
  Receive Date: 20110705
  Receipt Date: 20110622
  Transmission Date: 20111222
  Serious: Yes (Other)
  Sender: FDA-Public Use
  Company Number: CA-BAYER-2011-053941

PATIENT
  Age: 32 Year
  Sex: Female
  Weight: 94 kg

DRUGS (3)
  1. YAZ [Suspect]
     Dosage: 1 DF, QD
     Route: 048
  2. ADVAIR DISKUS 100/50 [Concomitant]
     Route: 065
  3. VENTOLIN HFA [Concomitant]
     Route: 065

REACTIONS (1)
  - DYSPNOEA [None]
